FAERS Safety Report 19058595 (Version 3)
Quarter: 2021Q2

REPORT INFORMATION
  Report Type: Other
  Country: US (occurrence: US)
  Receive Date: 20210325
  Receipt Date: 20210527
  Transmission Date: 20210717
  Serious: Yes (Hospitalization)
  Sender: FDA-Public Use
  Company Number: US-ROCHE-2794457

PATIENT
  Age: 55 Year
  Sex: Female
  Weight: 83.08 kg

DRUGS (21)
  1. CLONAZEPAM. [Concomitant]
     Active Substance: CLONAZEPAM
     Indication: DEPRESSION
  2. NEXIUM [Concomitant]
     Active Substance: ESOMEPRAZOLE MAGNESIUM
     Indication: GASTROOESOPHAGEAL REFLUX DISEASE
     Dosage: STARTED ABOUT 2 YEARS AGO ;ONGOING: YES
     Route: 048
  3. VITAMIN D3 [Concomitant]
     Active Substance: CHOLECALCIFEROL
     Indication: VITAMIN D DECREASED
     Dosage: STARTED 8 YEARS AGO ;ONGOING: YES
     Route: 048
  4. ENSPRYNG [Suspect]
     Active Substance: SATRALIZUMAB-MWGE
     Indication: NEUROMYELITIS OPTICA SPECTRUM DISORDER
     Dosage: ON WEEK 0, 2 AND 4 FOLLOWED BY A MAINTENANCE DOSE 120 MG EVERY 4 WEEKS
     Route: 058
     Dates: start: 20210317
  5. ENSPRYNG [Suspect]
     Active Substance: SATRALIZUMAB-MWGE
     Dosage: AFTER LOADING DOSES COMPLETE ADMINISTER 1 SYRINGE ONCE EVERY 4 WEEK
     Route: 058
  6. RITUXAN [Suspect]
     Active Substance: RITUXIMAB
     Indication: NEUROMYELITIS OPTICA SPECTRUM DISORDER
     Dosage: STARTED 5 TO 7 YEARS AGO ;ONGOING: NO
     Route: 042
     Dates: end: 202008
  7. ZANAFLEX [Concomitant]
     Active Substance: TIZANIDINE HYDROCHLORIDE
     Indication: MUSCLE SPASMS
     Dosage: STARTED YEARS AGO BEFORE RITUXAN ;ONGOING: YES
     Route: 048
  8. TESTOSTERONE. [Concomitant]
     Active Substance: TESTOSTERONE
     Indication: PREMATURE MENOPAUSE
     Route: 061
  9. PROGESTERONE. [Concomitant]
     Active Substance: PROGESTERONE
     Indication: PREMATURE MENOPAUSE
     Dosage: STARTED 2011 OR 2012 TROCHE ;ONGOING: YES
     Route: 048
  10. ESTRADIOL. [Concomitant]
     Active Substance: ESTRADIOL
     Indication: PREMATURE MENOPAUSE
  11. CLONAZEPAM. [Concomitant]
     Active Substance: CLONAZEPAM
     Indication: ANXIETY
     Dosage: AS NEEDED IN WAFER FORM ;ONGOING: YES
  12. CLONAZEPAM. [Concomitant]
     Active Substance: CLONAZEPAM
     Indication: PANIC ATTACK
  13. TORADOL [Concomitant]
     Active Substance: KETOROLAC TROMETHAMINE
     Indication: PAIN
     Dosage: AS NEEDED ;ONGOING: YES
     Route: 048
  14. LYRICA [Concomitant]
     Active Substance: PREGABALIN
     Indication: NEURALGIA
     Dosage: STARTED ABOUT 6 YEARS AGO ;ONGOING: YES
     Route: 048
  15. PERCOCET [Concomitant]
     Active Substance: ACETAMINOPHEN\OXYCODONE HYDROCHLORIDE
     Indication: PAIN
     Dosage: STARTED A LONG TIME AGO AS NEEDED ;ONGOING: YES
     Route: 048
  16. ZOLOFT [Concomitant]
     Active Substance: SERTRALINE HYDROCHLORIDE
     Indication: DEPRESSION
     Dosage: STARTED 15 YEARS AGO ;ONGOING: YES
     Route: 048
  17. ESTRADIOL. [Concomitant]
     Active Substance: ESTRADIOL
     Indication: HYSTERECTOMY
     Route: 061
     Dates: start: 2011
  18. ZINC. [Concomitant]
     Active Substance: ZINC
     Indication: ALOPECIA
     Dosage: STARTED MANY YEARS AGO ;ONGOING: YES
     Route: 048
  19. ARMOUR THYROID [Concomitant]
     Active Substance: THYROID, PORCINE
     Indication: HYPOTHYROIDISM
     Dosage: STARTED ABOUT 7 YEARS AGO ;ONGOING: YES
     Route: 048
  20. DILAUDID [Concomitant]
     Active Substance: HYDROMORPHONE HYDROCHLORIDE
     Indication: PAIN
     Dosage: STARTED A LONG TIME AGO AS NEEDED ;ONGOING: YES
     Route: 048
  21. ESTRADIOL. [Concomitant]
     Active Substance: ESTRADIOL
     Indication: OOPHORECTOMY

REACTIONS (5)
  - Fatigue [Not Recovered/Not Resolved]
  - Pain [Not Recovered/Not Resolved]
  - Asthenia [Recovered/Resolved]
  - Pyrexia [Recovered/Resolved]
  - Off label use [Unknown]

NARRATIVE: CASE EVENT DATE: 20210317
